FAERS Safety Report 6327012-5 (Version None)
Quarter: 2009Q3

REPORT INFORMATION
  Report Type: 
  Country: None (occurrence: None)
  Receive Date: 20090825
  Receipt Date: 20090819
  Transmission Date: 20100115
  Serious: Yes (Hospitalization)
  Sender: FDA-Public Use
  Company Number: CH-BAYER-200928899GPV

PATIENT
  Age: 18 Year
  Sex: Male

DRUGS (2)
  1. ASPIRIN [Suspect]
     Indication: MALAISE
     Route: 048
     Dates: start: 20090524, end: 20090524
  2. SPIRALGIN [Suspect]
     Indication: PHARYNGITIS
     Route: 048
     Dates: start: 20090521, end: 20090524

REACTIONS (5)
  - HAEMATEMESIS [None]
  - HAEMOGLOBIN DECREASED [None]
  - MALLORY-WEISS SYNDROME [None]
  - NAUSEA [None]
  - VOMITING [None]
